FAERS Safety Report 6955703-1 (Version None)
Quarter: 2010Q3

REPORT INFORMATION
  Report Type: 
  Country: None (occurrence: None)
  Receive Date: 20100826
  Receipt Date: 20100826
  Transmission Date: 20110219
  Serious: No
  Sender: FDA-Public Use
  Company Number: None

PATIENT
  Sex: Female

DRUGS (2)
  1. HERCEPTIN [Suspect]
  2. TAXOTERE [Suspect]

REACTIONS (1)
  - NEUROPATHY PERIPHERAL [None]
